FAERS Safety Report 5533654-7 (Version None)
Quarter: 2007Q4

REPORT INFORMATION
  Report Type: 
  Country: None (occurrence: None)
  Receive Date: 20071120
  Receipt Date: 20070912
  Transmission Date: 20080405
  Serious: No
  Sender: FDA-Public Use
  Company Number: WAES 0709USA01978

PATIENT
  Age: 65 Year
  Sex: Male

DRUGS (7)
  1. JANUVIA [Suspect]
     Dosage: 100 MG/DAILY/PO ; 50 MG/DAILY/PO
     Route: 048
  2. ACTOS [Concomitant]
  3. ZANTAC [Concomitant]
  4. ASPIRIN [Concomitant]
  5. BENAZEPRIL HYDROCHLORIDE [Concomitant]
  6. DOXAZOSIN MESYLATE [Concomitant]
  7. GLYBURIDE [Concomitant]

REACTIONS (2)
  - ABDOMINAL DISTENSION [None]
  - NAUSEA [None]
